FAERS Safety Report 5573190-5 (Version None)
Quarter: 2007Q4

REPORT INFORMATION
  Report Type: 
  Country: None (occurrence: None)
  Receive Date: 20071224
  Receipt Date: 20071218
  Transmission Date: 20080405
  Serious: Yes (Other)
  Sender: FDA-Public Use
  Company Number: CL-SANOFI-SYNTHELABO-A01200508244

PATIENT
  Age: 30 Year
  Sex: Female

DRUGS (3)
  1. ELOXATIN [Suspect]
     Indication: COLORECTAL CANCER
     Route: 042
     Dates: start: 20040910, end: 20040910
  2. LEUCOVORIN [Concomitant]
     Indication: COLORECTAL CANCER
     Dates: start: 20040901, end: 20040901
  3. FLUOROURACIL [Concomitant]
     Indication: COLORECTAL CANCER
     Dates: start: 20040901, end: 20040901

REACTIONS (1)
  - CRYPTOGENIC ORGANISING PNEUMONIA [None]
